FAERS Safety Report 13642464 (Version 1)
Quarter: 2017Q2

REPORT INFORMATION
  Report Type: Spontaneous
  Country: AT (occurrence: AT)
  Receive Date: 20170612
  Receipt Date: 20170612
  Transmission Date: 20170830
  Serious: Yes (Other)
  Sender: FDA-Public Use
  Company Number: AT-OTSUKA-2017_012536

PATIENT
  Age: 24 Year
  Sex: Female

DRUGS (1)
  1. ABILIFY MAINTENA [Suspect]
     Active Substance: ARIPIPRAZOLE
     Indication: IMPULSE-CONTROL DISORDER
     Dosage: 400 MG, 1 TIME IN 4 WEEKS
     Route: 065
     Dates: start: 20160118, end: 20160213

REACTIONS (1)
  - Optic atrophy [Unknown]

NARRATIVE: CASE EVENT DATE: 20161103
